FAERS Safety Report 17155628 (Version 1)
Quarter: 2019Q4

REPORT INFORMATION
  Report Type: Report from Study
  Country: CR (occurrence: CR)
  Receive Date: 20191215
  Receipt Date: 20191215
  Transmission Date: 20200122
  Serious: Yes (Other)
  Sender: FDA-Public Use
  Company Number: CR-SA-2019SA343392

PATIENT
  Age: 67 Year
  Sex: Female

DRUGS (3)
  1. HYDROCHLOROTHIAZIDE/IRBESARTAN [Suspect]
     Active Substance: HYDROCHLOROTHIAZIDE\IRBESARTAN
     Indication: ILL-DEFINED DISORDER
     Dosage: 1 DF (300 MG OF IRBESARTAN + 12.5 MG OF HYDROCHLOROTHIAZIDE), QD
     Route: 048
     Dates: start: 2009
  2. GELICART [Suspect]
     Active Substance: DIETARY SUPPLEMENT
     Indication: BACK DISORDER
     Dosage: 1 ENVELOPE, QD
     Route: 048
     Dates: start: 2018
  3. CLOPIDOGREL BISULFATE. [Suspect]
     Active Substance: CLOPIDOGREL BISULFATE
     Indication: CEREBRAL DISORDER
     Dosage: 75 MG, QD
     Route: 048
     Dates: start: 2016

REACTIONS (5)
  - Product use in unapproved indication [Unknown]
  - Product use in unapproved indication [Unknown]
  - Cerebral disorder [Recovering/Resolving]
  - Back disorder [Recovering/Resolving]
  - Drug ineffective [Unknown]

NARRATIVE: CASE EVENT DATE: 2018
